FAERS Safety Report 5856293-7 (Version None)
Quarter: 2008Q3

REPORT INFORMATION
  Report Type: 
  Country: None (occurrence: None)
  Receive Date: 20080825
  Receipt Date: 20080818
  Transmission Date: 20090109
  Serious: Yes (Other)
  Sender: FDA-Public Use
  Company Number: B0534195A

PATIENT
  Age: 12 Year
  Sex: Male

DRUGS (2)
  1. ALTARGO [Suspect]
     Indication: IMPETIGO
     Route: 065
  2. AMOKSIKLAV [Concomitant]
     Indication: IMPETIGO
     Route: 048

REACTIONS (4)
  - DERMATITIS ALLERGIC [None]
  - FEELING ABNORMAL [None]
  - RASH ERYTHEMATOUS [None]
  - RASH PRURITIC [None]
